FAERS Safety Report 15883068 (Version 2)
Quarter: 2019Q1

REPORT INFORMATION
  Report Type: Spontaneous
  Country: US (occurrence: US)
  Receive Date: 20190129
  Receipt Date: 20190218
  Transmission Date: 20190417
  Serious: Yes (Hospitalization)
  Sender: FDA-Public Use
  Company Number: US-HORIZON-RAV-0022-2019

PATIENT
  Age: 10 Year
  Sex: Female

DRUGS (3)
  1. L-CITRULLINE [Concomitant]
     Active Substance: CITRULLINE
  2. RAVICTI [Suspect]
     Active Substance: GLYCEROL PHENYLBUTYRATE
     Indication: ORNITHINE TRANSCARBAMOYLASE DEFICIENCY
     Dosage: 3ML THREE TIMES DAILY WITH MEALS
     Route: 048
     Dates: start: 20141003
  3. KEPPRA [Concomitant]
     Active Substance: LEVETIRACETAM

REACTIONS (3)
  - Constipation [Unknown]
  - Ammonia increased [Recovered/Resolved]
  - Intestinal obstruction [Unknown]

NARRATIVE: CASE EVENT DATE: 201901
